FAERS Safety Report 16935459 (Version 1)
Quarter: 2019Q4

REPORT INFORMATION
  Report Type: Spontaneous
  Country: GB (occurrence: GB)
  Receive Date: 20191018
  Receipt Date: 20191018
  Transmission Date: 20200122
  Serious: Yes (Disabling, Other)
  Sender: FDA-Public Use
  Company Number: GB-MYLANLABS-2010S1017469

PATIENT
  Age: 50 Year
  Sex: Female

DRUGS (32)
  1. LIPITOR [Suspect]
     Active Substance: ATORVASTATIN CALCIUM
     Dosage: 40 MG,UNK
     Dates: start: 20030310
  2. EVOREL CONTI [Concomitant]
     Active Substance: ESTRADIOL\NORETHINDRONE ACETATE
     Dosage: UNK
  3. ESTRADIOL. [Concomitant]
     Active Substance: ESTRADIOL
     Indication: NAUSEA
     Dosage: 2 DOSAGE FORM, QD
  4. ROSUVASTATIN. [Concomitant]
     Active Substance: ROSUVASTATIN
  5. SIMVASTATIN. [Suspect]
     Active Substance: SIMVASTATIN
     Indication: PAIN IN EXTREMITY
  6. EVOREL CONTI [Concomitant]
     Active Substance: ESTRADIOL\NORETHINDRONE ACETATE
     Dosage: UNK
  7. NORETHISTERONE ACETATE [Concomitant]
     Active Substance: NORETHINDRONE ACETATE
     Indication: CHEST PAIN
  8. MEDROXYPROGESTERONE ACETATE. [Concomitant]
     Active Substance: MEDROXYPROGESTERONE ACETATE
  9. ESTRADIOL. [Concomitant]
     Active Substance: ESTRADIOL
     Indication: ANXIETY
  10. PRAVASTATIN. [Suspect]
     Active Substance: PRAVASTATIN
     Dosage: UNK
  11. NORETHISTERONE ACETATE [Concomitant]
     Active Substance: NORETHINDRONE ACETATE
     Indication: PANIC ATTACK
  12. ESTRADIOL. [Concomitant]
     Active Substance: ESTRADIOL
     Indication: CHEST PAIN
  13. POTASSIUM HYDROGEN CARBONATE [Concomitant]
  14. PRAVASTATIN. [Suspect]
     Active Substance: PRAVASTATIN
     Indication: PRODUCT USED FOR UNKNOWN INDICATION
     Dosage: 10 MG,UNK
  15. ESTROGENS CONJUGATED [Concomitant]
     Active Substance: ESTROGENS, CONJUGATED
  16. SODIUM ALGINATE [Concomitant]
     Active Substance: SODIUM ALGINATE
  17. ESTRADIOL. [Concomitant]
     Active Substance: ESTRADIOL
     Indication: PANIC ATTACK
  18. LANSOPRAZOLE. [Concomitant]
     Active Substance: LANSOPRAZOLE
     Indication: PRODUCT USED FOR UNKNOWN INDICATION
     Dosage: UNK
  19. NORETHISTERONE ACETATE [Concomitant]
     Active Substance: NORETHINDRONE ACETATE
     Indication: FEELING HOT
     Dosage: 2 DOSAGE FORM, QW
  20. LIPITOR [Suspect]
     Active Substance: ATORVASTATIN CALCIUM
     Indication: HYPERCHOLESTEROLAEMIA
     Dosage: 10 MG,UNK
     Dates: start: 19981113, end: 20061128
  21. EVOREL CONTI [Concomitant]
     Active Substance: ESTRADIOL\NORETHINDRONE ACETATE
     Dosage: UNK
  22. NORETHISTERONE ACETATE [Concomitant]
     Active Substance: NORETHINDRONE ACETATE
     Indication: NAUSEA
  23. NORETHISTERONE ACETATE [Concomitant]
     Active Substance: NORETHINDRONE ACETATE
     Indication: ANXIETY
  24. ESTRADIOL. [Concomitant]
     Active Substance: ESTRADIOL
     Indication: FEELING HOT
  25. SIMVASTATIN. [Suspect]
     Active Substance: SIMVASTATIN
     Indication: MYALGIA
  26. LANSOPRAZOLE. [Concomitant]
     Active Substance: LANSOPRAZOLE
     Indication: DYSPEPSIA
     Dosage: UNK
  27. FLUOXETINE [Concomitant]
     Active Substance: FLUOXETINE HYDROCHLORIDE
  28. SIMVASTATIN. [Suspect]
     Active Substance: SIMVASTATIN
     Indication: FATIGUE
     Dosage: UNK
     Dates: start: 2003
  29. SIMVASTATIN. [Suspect]
     Active Substance: SIMVASTATIN
     Indication: MEMORY IMPAIRMENT
  30. EVOREL CONTI [Concomitant]
     Active Substance: ESTRADIOL\NORETHINDRONE ACETATE
     Indication: PRODUCT USED FOR UNKNOWN INDICATION
     Dosage: UNK
  31. EVOREL CONTI [Concomitant]
     Active Substance: ESTRADIOL\NORETHINDRONE ACETATE
     Dosage: UNK
  32. EVOREL CONTI [Concomitant]
     Active Substance: ESTRADIOL\NORETHINDRONE ACETATE
     Dosage: UNK

REACTIONS (36)
  - Dry mouth [Unknown]
  - Musculoskeletal pain [Unknown]
  - Anxiety [Unknown]
  - Arthralgia [Not Recovered/Not Resolved]
  - Dysgeusia [Unknown]
  - Influenza like illness [Unknown]
  - Menopausal symptoms [Unknown]
  - Hypersensitivity [Unknown]
  - Gastroenteritis [Recovered/Resolved]
  - Upper respiratory tract infection [Unknown]
  - Viral infection [Unknown]
  - Unevaluable event [Unknown]
  - Angioedema [Unknown]
  - Pain in extremity [Unknown]
  - Road traffic accident [Unknown]
  - Muscle injury [Recovering/Resolving]
  - Myalgia [Unknown]
  - Muscle atrophy [Unknown]
  - Salivary hypersecretion [Unknown]
  - Depression [Unknown]
  - Gastric ulcer [Unknown]
  - Post viral fatigue syndrome [Unknown]
  - Photosensitivity reaction [Unknown]
  - Asthenia [Unknown]
  - Abdominal pain upper [Unknown]
  - Blood cholesterol increased [Unknown]
  - Conjunctivitis [Unknown]
  - Arthritis [Unknown]
  - Blepharitis [Unknown]
  - Fatigue [Unknown]
  - Joint injury [Unknown]
  - Irritable bowel syndrome [Unknown]
  - Drug ineffective [Unknown]
  - Memory impairment [Unknown]
  - Restless legs syndrome [Unknown]
  - Urticaria [Unknown]

NARRATIVE: CASE EVENT DATE: 199904
